FAERS Safety Report 7261499-9 (Version None)
Quarter: 2011Q1

REPORT INFORMATION
  Report Type: 
  Country: None (occurrence: None)
  Receive Date: 20110130
  Receipt Date: 20100929
  Transmission Date: 20110831
  Serious: No
  Sender: FDA-Public Use
  Company Number: US-ABBOTT-10P-163-0675070-00

PATIENT
  Age: 12 Year
  Sex: Female

DRUGS (2)
  1. HUMIRA [Suspect]
     Indication: CROHN'S DISEASE
     Dosage: 1QOW AFTER LOADING DOSES COMPLETED
     Dates: start: 20100928
  2. PREDNISONE [Concomitant]
     Indication: PRODUCT USED FOR UNKNOWN INDICATION
     Route: 048

REACTIONS (4)
  - DEVICE MALFUNCTION [None]
  - INJECTION SITE PARAESTHESIA [None]
  - DRUG DOSE OMISSION [None]
  - INJECTION SITE HAEMORRHAGE [None]
